FAERS Safety Report 4759662-1 (Version None)
Quarter: 2005Q3

REPORT INFORMATION
  Report Type: 
  Country: None (occurrence: None)
  Receive Date: 20050831
  Receipt Date: 20050815
  Transmission Date: 20060218
  Serious: Yes (Other)
  Sender: FDA-Public Use
  Company Number: USA0508105599

PATIENT
  Age: 82 Year
  Sex: Male

DRUGS (13)
  1. FORTEO [Suspect]
     Dosage: 20 UG
     Dates: start: 20050719
  2. ASPIRIN [Concomitant]
  3. ACIPHEX [Concomitant]
  4. ALBUTEROL SULFATE W/ IPRATROPIUM BROMIDE [Concomitant]
  5. ALBUTEROL W/IPRATROPIUM [Concomitant]
  6. FLONASE [Concomitant]
  7. GEMFIBROZIL [Concomitant]
  8. LASIX [Concomitant]
  9. LOPRESSOR [Concomitant]
  10. SINGULAIR (MONTELUKAST0 [Concomitant]
  11. VIAGRA [Concomitant]
  12. ACETAMINOPHEN W/HYDROCODONE [Concomitant]
  13. ZOCOR [Concomitant]

REACTIONS (1)
  - FRACTURE [None]
